FAERS Safety Report 24178715 (Version 2)
Quarter: 2025Q1

REPORT INFORMATION
  Report Type: Spontaneous
  Country: AR (occurrence: AR)
  Receive Date: 20240806
  Receipt Date: 20250124
  Transmission Date: 20250408
  Serious: Yes (Hospitalization, Other)
  Sender: PFIZER
  Company Number: AR-PFIZER INC-202400229253

PATIENT
  Age: 53 Year
  Sex: Female

DRUGS (2)
  1. IBRANCE [Suspect]
     Active Substance: PALBOCICLIB
     Indication: Breast cancer metastatic
     Dates: start: 20230717, end: 20240626
  2. FULVESTRANT [Concomitant]
     Active Substance: FULVESTRANT

REACTIONS (8)
  - Cardiac failure [Unknown]
  - Pulmonary oedema [Unknown]
  - Dyspnoea [Unknown]
  - Arrhythmia [Unknown]
  - Anaemia [Unknown]
  - Decreased immune responsiveness [Unknown]
  - Mental disorder [Unknown]
  - Neoplasm progression [Unknown]

NARRATIVE: CASE EVENT DATE: 20240719
